FAERS Safety Report 5564377-6 (Version None)
Quarter: 2007Q4

REPORT INFORMATION
  Report Type: 
  Country: None (occurrence: None)
  Receive Date: 20071218
  Receipt Date: 20071213
  Transmission Date: 20080405
  Serious: Yes (Hospitalization, Other)
  Sender: FDA-Public Use
  Company Number: BR-BRISTOL-MYERS SQUIBB COMPANY-14016778

PATIENT
  Age: 79 Year
  Sex: Female
  Weight: 72 kg

DRUGS (3)
  1. APROZIDE [Suspect]
     Indication: HYPERTENSION
     Dosage: 1 DOSAGE FORM = 1 TABLET. 1 TABLET =  150 MG TABLET
     Dates: start: 20070103
  2. CAPTOPRIL [Suspect]
     Indication: BLOOD PRESSURE INCREASED
     Dates: start: 20070601
  3. LEXOTAN [Concomitant]
     Dosage: 1 DOSAGE FORM = 1 TABLET
     Route: 048
     Dates: start: 20020101

REACTIONS (5)
  - ASTHENIA [None]
  - BLOOD PRESSURE DECREASED [None]
  - BLOOD PRESSURE INCREASED [None]
  - DRUG INEFFECTIVE [None]
  - DYSPNOEA [None]
